FAERS Safety Report 8156111-0 (Version None)
Quarter: 2012Q1

REPORT INFORMATION
  Report Type: 
  Country: None (occurrence: None)
  Receive Date: 20120222
  Receipt Date: 20120215
  Transmission Date: 20120608
  Serious: Yes (Other)
  Sender: FDA-Public Use
  Company Number: FR-BAYER-2012-016236

PATIENT
  Age: 63 Year
  Sex: Male

DRUGS (7)
  1. CORDARONE [Concomitant]
     Dosage: UNK
     Dates: start: 20120201
  2. PREDNISOLONE [Concomitant]
     Dosage: 40 MG, OM
  3. ZOMETA [Concomitant]
     Dosage: UNK
     Dates: start: 20120119, end: 20120119
  4. PANTOPRAZOLE SODIUM [Concomitant]
     Dosage: UNK
     Dates: start: 20120124
  5. MOXIFLOXACIN HCL [Suspect]
     Indication: LUNG DISORDER
     Dosage: 400 MG, QD
     Dates: start: 20120125, end: 20120205
  6. METHYLPREDNISOLONE [Concomitant]
     Dosage: UNK
     Dates: start: 20120119, end: 20120201
  7. HEPARIN [Concomitant]

REACTIONS (5)
  - WHITE BLOOD CELL COUNT DECREASED [None]
  - ANAEMIA [None]
  - METASTASES TO BONE [None]
  - PLATELET COUNT DECREASED [None]
  - NEUTROPHIL COUNT DECREASED [None]
